FAERS Safety Report 19212135 (Version 1)
Quarter: 2021Q2

REPORT INFORMATION
  Report Type: Spontaneous
  Country: US (occurrence: US)
  Receive Date: 20210504
  Receipt Date: 20210504
  Transmission Date: 20210717
  Serious: Yes (Other)
  Sender: FDA-Public Use
  Company Number: None

PATIENT
  Age: 69 Year
  Sex: Female

DRUGS (7)
  1. PANTOPRAZOLE 20MG [Concomitant]
     Active Substance: PANTOPRAZOLE SODIUM
  2. LORAZEPAM 0.5MG [Concomitant]
     Active Substance: LORAZEPAM
  3. VALSARTAN 40MG [Concomitant]
     Active Substance: VALSARTAN
     Dates: start: 20210414
  4. PRALUENT [Suspect]
     Active Substance: ALIROCUMAB
     Dosage: ?          OTHER FREQUENCY:EVERY 2 WEEKS;?
     Route: 058
     Dates: start: 20210504
  5. ROSUVASTAIN 10MG [Concomitant]
  6. CLOPIDOGERL 75MG [Concomitant]
  7. METOPROLOL ER SUCCINATE 25MG [Concomitant]
     Dates: start: 20210414

REACTIONS (1)
  - Syringe issue [None]

NARRATIVE: CASE EVENT DATE: 20210504
